APPROVED DRUG PRODUCT: ACANYA
Active Ingredient: BENZOYL PEROXIDE; CLINDAMYCIN PHOSPHATE
Strength: 2.5%;EQ 1.2% BASE
Dosage Form/Route: GEL;TOPICAL
Application: N050819 | Product #001 | TE Code: AB
Applicant: BAUSCH HEALTH AMERICAS INC
Approved: Oct 23, 2008 | RLD: Yes | RS: Yes | Type: RX

PATENTS:
Patent 8288434 | Expires: Aug 5, 2029
Patent 8895070 | Expires: Jun 3, 2029
Patent 10220049 | Expires: Jun 3, 2029
Patent 10624918 | Expires: Jun 3, 2029
Patent 8663699 | Expires: Jun 3, 2029
Patent 9078870 | Expires: Jun 3, 2029